FAERS Safety Report 6972752-8 (Version None)
Quarter: 2010Q3

REPORT INFORMATION
  Report Type: 
  Country: None (occurrence: None)
  Receive Date: 20100909
  Receipt Date: 20100831
  Transmission Date: 20110219
  Serious: Yes (Hospitalization)
  Sender: FDA-Public Use
  Company Number: JP-PFIZER INC-2010091038

PATIENT
  Age: 52 Year
  Sex: Male

DRUGS (16)
  1. DILTIAZEM HCL [Suspect]
     Indication: HYPERTENSION
     Dosage: 100 MG, DAILY
     Route: 048
     Dates: start: 20081009, end: 20081128
  2. ALDACTONE [Suspect]
     Indication: CARDIAC FAILURE
     Dosage: 25 MG, DAILY
     Route: 048
     Dates: start: 20081009, end: 20081128
  3. LIPITOR [Suspect]
     Indication: HYPERLIPIDAEMIA
     Dosage: 10 MG, DAILY
     Route: 048
     Dates: start: 20081009, end: 20081128
  4. DEPAS [Suspect]
     Indication: ANXIETY
     Dosage: 2 MG, DAILY
     Route: 048
     Dates: start: 20081009, end: 20081128
  5. DEPAS [Suspect]
     Dosage: 2 MG, UNK
     Route: 048
     Dates: start: 20081202
  6. ASPIRIN [Suspect]
     Indication: ANTIPLATELET THERAPY
     Dosage: 100 MG, DAILY
     Route: 048
     Dates: start: 20081009, end: 20081128
  7. ASPIRIN [Suspect]
     Dosage: 100 MG, UNK
     Route: 048
     Dates: start: 20081218
  8. LASIX [Suspect]
     Indication: CARDIAC FAILURE
     Dosage: 20 MG, DAILY
     Route: 048
     Dates: start: 20081009, end: 20081128
  9. LASIX [Suspect]
     Dosage: 20 MG, UNK
     Route: 048
     Dates: start: 20081218
  10. MICARDIS [Suspect]
     Indication: HYPERTENSION
     Dosage: 40 MG, DAILY
     Route: 048
     Dates: start: 20081009, end: 20081128
  11. ITOROL [Suspect]
     Indication: ANGINA PECTORIS
     Dosage: 40 MG, DAILY
     Route: 048
     Dates: start: 20081009, end: 20081128
  12. ITOROL [Suspect]
     Dosage: 20 MG, DAILY
     Route: 048
     Dates: start: 20081210
  13. WARFARIN [Suspect]
     Dosage: 1 MG, DAILY
     Route: 048
     Dates: start: 20081009, end: 20081128
  14. WARFARIN [Suspect]
     Dosage: 4 MG, DAILY
     Route: 048
     Dates: start: 20081202
  15. FAMOTIDINE [Concomitant]
     Dosage: 40 MG, DAILY
     Route: 048
     Dates: start: 20081009, end: 20081128
  16. MAGNESIUM OXIDE [Concomitant]
     Dosage: 750 MG, DAILY
     Route: 048
     Dates: start: 20081009, end: 20081128

REACTIONS (1)
  - HEPATITIS ACUTE [None]
